FAERS Safety Report 11377474 (Version 4)
Quarter: 2016Q1

REPORT INFORMATION
  Report Type: Report from Study
  Country: DE (occurrence: DE)
  Receive Date: 20150813
  Receipt Date: 20160324
  Transmission Date: 20160525
  Serious: Yes (Hospitalization)
  Sender: FDA-Public Use
  Company Number: DE-TEVA-583786GER

PATIENT
  Age: 80 Year
  Sex: Female
  Weight: 88 kg

DRUGS (20)
  1. VINCRISTIN (R-CHOP) [Suspect]
     Active Substance: VINCRISTINE
     Indication: LYMPHOMA
     Route: 065
     Dates: start: 20150721
  2. ATORVASTATIN [Concomitant]
     Active Substance: ATORVASTATIN
     Indication: HYPERCHOLESTEROLAEMIA
     Dosage: 30 MILLIGRAM DAILY;
     Route: 048
  3. DOXORUBICIN (R-CHOP) [Suspect]
     Active Substance: DOXORUBICIN
     Indication: LYMPHOMA
     Route: 065
     Dates: start: 20150721
  4. NEULASTA [Suspect]
     Active Substance: PEGFILGRASTIM
     Indication: PROPHYLAXIS
     Route: 058
     Dates: start: 20150722, end: 20151111
  5. INSULIN LANCTUS [Concomitant]
     Indication: DIABETES MELLITUS
     Dosage: 18 IU (INTERNATIONAL UNIT) DAILY;
     Route: 058
  6. NATRILIX [Concomitant]
     Active Substance: INDAPAMIDE
     Indication: HYPERTENSION
     Dosage: 1.5 MILLIGRAM DAILY;
     Route: 048
     Dates: start: 2000
  7. RANITIDIN [Concomitant]
     Active Substance: RANITIDINE HYDROCHLORIDE
     Indication: ALLERGY PROPHYLAXIS
     Route: 042
     Dates: start: 20150720
  8. CYCLOPHOSPHAMIDE (R-CHOP) [Suspect]
     Active Substance: CYCLOPHOSPHAMIDE
     Indication: LYMPHOMA
     Route: 065
     Dates: start: 20150721
  9. INSULIN RAPID [Concomitant]
     Active Substance: INSULIN NOS
     Indication: DIABETES MELLITUS
     Dosage: 38 IU (INTERNATIONAL UNIT) DAILY;
     Route: 058
  10. EUTHYROX [Concomitant]
     Active Substance: LEVOTHYROXINE SODIUM
     Dosage: 75 MILLIGRAM DAILY;
     Route: 048
     Dates: start: 1984
  11. ONDANSETRON [Concomitant]
     Active Substance: ONDANSETRON
     Indication: PROPHYLAXIS OF NAUSEA AND VOMITING
     Route: 042
     Dates: start: 20150721
  12. LONQUEX [Suspect]
     Active Substance: LIPEGFILGRASTIM
     Dosage: 0 MILLIGRAM DAILY;
     Route: 065
  13. PREDNISON [Concomitant]
     Active Substance: PREDNISONE
     Indication: ALLERGY PROPHYLAXIS
     Dates: start: 20150720
  14. UROMITEXAN [Concomitant]
     Active Substance: MESNA
     Route: 042
     Dates: start: 20150310
  15. METOPROLOL. [Concomitant]
     Active Substance: METOPROLOL
     Indication: HYPERTENSION
     Dosage: 71.25 MILLIGRAM DAILY;
     Route: 048
     Dates: start: 2000
  16. UROMITEXAN [Concomitant]
     Active Substance: MESNA
     Indication: ALLERGY PROPHYLAXIS
     Route: 042
     Dates: start: 20150721
  17. RITUXIMAB (R-CHOP) [Suspect]
     Active Substance: RITUXIMAB
     Indication: LYMPHOMA
     Route: 065
     Dates: start: 20150720
  18. PARACETAMOL [Concomitant]
     Active Substance: ACETAMINOPHEN
     Indication: ALLERGY PROPHYLAXIS
     Route: 042
     Dates: start: 20150720
  19. SEVICAR [Concomitant]
     Indication: HYPERTENSION
     Dosage: DAILY INTAKE, DAILY DOSE UNKNOWN
     Route: 048
     Dates: start: 2000
  20. CLEMASTIL [Concomitant]
     Indication: ALLERGY PROPHYLAXIS
     Route: 042
     Dates: start: 20150720

REACTIONS (1)
  - Abscess neck [Recovered/Resolved]

NARRATIVE: CASE EVENT DATE: 20150803
